FAERS Safety Report 18378882 (Version 1)
Quarter: 2020Q4

REPORT INFORMATION
  Report Type: Spontaneous
  Country: US (occurrence: US)
  Receive Date: 20201013
  Receipt Date: 20201013
  Transmission Date: 20210114
  Serious: Yes (Other)
  Sender: FDA-Public Use
  Company Number: US-UCBSA-2020039808

PATIENT
  Age: 49 Year
  Sex: Female

DRUGS (5)
  1. CIPRO [Concomitant]
     Active Substance: CIPROFLOXACIN HYDROCHLORIDE
     Indication: SINUSITIS
  2. TOPAMAX [Concomitant]
     Active Substance: TOPIRAMATE
     Indication: PRODUCT USED FOR UNKNOWN INDICATION
     Dosage: UNK
  3. CIMZIA [Suspect]
     Active Substance: CERTOLIZUMAB PEGOL
     Indication: CROHN^S DISEASE
     Dosage: 400 MILLIGRAM, EV 4 WEEKS
     Route: 058
     Dates: start: 20140111
  4. METHOTREXATE. [Suspect]
     Active Substance: METHOTREXATE
     Indication: PRODUCT USED FOR UNKNOWN INDICATION
     Dosage: UNK
  5. BUDESONIDE. [Concomitant]
     Active Substance: BUDESONIDE

REACTIONS (16)
  - Nephrolithiasis [Unknown]
  - Crohn^s disease [Unknown]
  - Sinusitis [Unknown]
  - Tongue ulceration [Unknown]
  - Nausea [Unknown]
  - Urinary tract infection [Unknown]
  - Abdominal discomfort [Unknown]
  - Alopecia [Unknown]
  - Glossodynia [Unknown]
  - Intentional dose omission [Unknown]
  - Abdominal pain upper [Unknown]
  - Chronic pigmented purpura [Recovering/Resolving]
  - Arthralgia [Recovered/Resolved]
  - Vomiting [Unknown]
  - Hypertonic bladder [Unknown]
  - Pain [Unknown]

NARRATIVE: CASE EVENT DATE: 201801
